FAERS Safety Report 7512053-2 (Version None)
Quarter: 2011Q2

REPORT INFORMATION
  Report Type: 
  Country: None (occurrence: None)
  Receive Date: 20110531
  Receipt Date: 20110519
  Transmission Date: 20111010
  Serious: Yes (Other)
  Sender: FDA-Public Use
  Company Number: US-BAYER-2011-043518

PATIENT
  Sex: Female

DRUGS (1)
  1. MIRENA [Suspect]
     Dosage: 20 MCG/24HR, CONT
     Route: 015
     Dates: start: 20101201

REACTIONS (4)
  - ADNEXA UTERI PAIN [None]
  - ABDOMINAL PAIN UPPER [None]
  - BREAST DISCHARGE [None]
  - AMENORRHOEA [None]
